FAERS Safety Report 8546619-8 (Version None)
Quarter: 2012Q3

REPORT INFORMATION
  Report Type: 
  Country: None (occurrence: None)
  Receive Date: 20120727
  Receipt Date: 20120112
  Transmission Date: 20120928
  Serious: No
  Sender: FDA-Public Use
  Company Number: US-ASTRAZENECA-2012SE00203

PATIENT
  Age: 48 Year
  Sex: Female

DRUGS (12)
  1. SEROQUEL [Suspect]
     Dosage: TAKING MORE THAN PRESCRIBED
     Route: 048
  2. SEROQUEL [Suspect]
     Route: 048
  3. SEROQUEL [Suspect]
     Indication: BIPOLAR DISORDER
     Route: 048
  4. SEROQUEL [Suspect]
     Route: 048
  5. SEROQUEL [Suspect]
     Indication: ANXIETY
     Route: 048
  6. SEROQUEL [Suspect]
     Dosage: TAKING MORE THAN PRESCRIBED
     Route: 048
  7. SEROQUEL [Suspect]
     Dosage: TAKING MORE THAN PRESCRIBED
     Route: 048
  8. SEROQUEL [Suspect]
     Route: 048
  9. SEROQUEL [Suspect]
     Route: 048
  10. SEROQUEL [Suspect]
     Route: 048
  11. SEROQUEL [Suspect]
     Indication: SLEEP DISORDER
     Route: 048
  12. SEROQUEL [Suspect]
     Route: 048

REACTIONS (9)
  - HALLUCINATION, VISUAL [None]
  - OFF LABEL USE [None]
  - DRUG DOSE OMISSION [None]
  - FEELING ABNORMAL [None]
  - ANGER [None]
  - NERVOUSNESS [None]
  - INSOMNIA [None]
  - HALLUCINATION, AUDITORY [None]
  - INCORRECT DOSE ADMINISTERED [None]
